FAERS Safety Report 7166288-1 (Version None)
Quarter: 2010Q4

REPORT INFORMATION
  Report Type: 
  Country: None (occurrence: None)
  Receive Date: 20101216
  Receipt Date: 20100916
  Transmission Date: 20110411
  Serious: Yes (Life-Threatening)
  Sender: FDA-Public Use
  Company Number: FR-CELGENEUS-056-21880-10121318

PATIENT

DRUGS (1)
  1. REVLIMID [Suspect]
     Route: 048
     Dates: start: 20071030, end: 20090322

REACTIONS (1)
  - LUNG DISORDER [None]
